FAERS Safety Report 9286076 (Version 2)
Quarter: 2013Q3

REPORT INFORMATION
  Report Type: Spontaneous
  Country: US (occurrence: None)
  Receive Date: 20130507
  Receipt Date: 20130718
  Transmission Date: 20140515
  Serious: Yes (Other)
  Sender: FDA-Public Use
  Company Number: IPC201304-000171

PATIENT
  Age: 57 Year
  Sex: Male

DRUGS (5)
  1. HYDROXYCHLOROQUINE SULFATE [Suspect]
     Indication: ARTHRITIS
     Dates: start: 20130326, end: 20130422
  2. PREDNISONE [Concomitant]
  3. METOCLOPRAMIDE [Concomitant]
  4. AMLODIPINE [Concomitant]
  5. OMEPRAZOLE [Concomitant]

REACTIONS (2)
  - Rash [None]
  - Psoriasis [None]
